FAERS Safety Report 10468930 (Version 2)
Quarter: 2014Q4

REPORT INFORMATION
  Report Type: Spontaneous
  Country: US (occurrence: US)
  Receive Date: 20140923
  Receipt Date: 20141118
  Transmission Date: 20150528
  Serious: No
  Sender: FDA-Public Use
  Company Number: US-009507513-1409USA005080

PATIENT
  Age: 25 Year
  Sex: Male

DRUGS (3)
  1. PEGINTRON [Suspect]
     Active Substance: PEGINTERFERON ALFA-2B
     Indication: HEPATITIS C
     Dosage: REDIPEN
     Route: 058
     Dates: start: 20140908
  2. SOVALDI [Suspect]
     Active Substance: SOFOSBUVIR
  3. REBETOL [Suspect]
     Active Substance: RIBAVIRIN

REACTIONS (8)
  - Tremor [Recovering/Resolving]
  - Influenza like illness [Recovering/Resolving]
  - Migraine [Recovering/Resolving]
  - Myalgia [Recovering/Resolving]
  - Product quality issue [Unknown]
  - Depression [Recovering/Resolving]
  - Feeling cold [Recovering/Resolving]
  - Anger [Recovering/Resolving]

NARRATIVE: CASE EVENT DATE: 20140908
